FAERS Safety Report 10585474 (Version 1)
Quarter: 2014Q4

REPORT INFORMATION
  Report Type: Report from Study
  Country: US (occurrence: US)
  Receive Date: 20141114
  Receipt Date: 20141114
  Transmission Date: 20150529
  Serious: Yes (Hospitalization)
  Sender: FDA-Public Use
  Company Number: US-VERTEX PHARMACEUTICALS-2014-004489

PATIENT
  Age: 27 Year
  Sex: Male

DRUGS (1)
  1. IVACAFTOR [Suspect]
     Active Substance: IVACAFTOR
     Indication: CYSTIC FIBROSIS
     Dosage: 150 MG, BID
     Route: 048
     Dates: start: 20120802

REACTIONS (4)
  - Toothache [Unknown]
  - Influenza like illness [Not Recovered/Not Resolved]
  - Respiratory disorder [Not Recovered/Not Resolved]
  - Antibiotic prophylaxis [Not Recovered/Not Resolved]

NARRATIVE: CASE EVENT DATE: 20141103
